FAERS Safety Report 5640707-1 (Version None)
Quarter: 2008Q1

REPORT INFORMATION
  Report Type: 
  Country: None (occurrence: None)
  Receive Date: 20080227
  Receipt Date: 20080220
  Transmission Date: 20080703
  Serious: Yes (Death)
  Sender: FDA-Public Use
  Company Number: US-BAXTER-2008BH001538

PATIENT
  Age: 30 Year
  Sex: Male
  Weight: 140 kg

DRUGS (10)
  1. HEPARIN SODIUM [Suspect]
     Indication: ANTICOAGULANT THERAPY
     Route: 042
     Dates: start: 20071221, end: 20071221
  2. COUMADIN [Concomitant]
     Indication: ATRIAL FIBRILLATION
     Dosage: DOSE UNIT:UNKNOWN
     Route: 048
     Dates: end: 20071201
  3. CARDIZEM [Concomitant]
     Indication: CARDIAC DISORDER
     Dosage: DOSE UNIT:UNKNOWN
     Route: 048
     Dates: end: 20071201
  4. FEOSOL [Concomitant]
     Indication: MEDICAL DIET
     Dosage: DOSE UNIT:UNKNOWN
     Route: 048
     Dates: end: 20071201
  5. PROTONIX [Concomitant]
     Indication: DRUG USE FOR UNKNOWN INDICATION
     Dosage: DOSE UNIT:UNKNOWN
     Route: 048
     Dates: end: 20071201
  6. LASIX [Concomitant]
     Indication: CARDIAC DISORDER
     Dosage: DOSE UNIT:UNKNOWN
     Route: 048
     Dates: end: 20071201
  7. VIAGRA [Concomitant]
     Indication: PULMONARY HYPERTENSION
     Dosage: DOSE UNIT:UNKNOWN
     Route: 048
     Dates: end: 20071201
  8. VASOTEC [Concomitant]
     Indication: HYPERTENSION
     Dosage: DOSE UNIT:UNKNOWN
     Route: 048
     Dates: end: 20071201
  9. LOPRESSOR [Concomitant]
     Indication: CARDIAC DISORDER
     Dosage: DOSE UNIT:UNKNOWN
     Route: 048
     Dates: end: 20071201
  10. DIGOXIN [Concomitant]
     Indication: CARDIAC DISORDER
     Dosage: DOSE UNIT:UNKNOWN
     Route: 048
     Dates: end: 20071201

REACTIONS (4)
  - ACIDOSIS [None]
  - BLOOD PH DECREASED [None]
  - BLOOD POTASSIUM INCREASED [None]
  - HYPOTENSION [None]
